FAERS Safety Report 4692186-9 (Version None)
Quarter: 2005Q2

REPORT INFORMATION
  Report Type: 
  Country: None (occurrence: None)
  Receive Date: 20050614
  Receipt Date: 20050523
  Transmission Date: 20051028
  Serious: Yes (Other)
  Sender: FDA-Public Use
  Company Number: TRP_0136_2005

PATIENT
  Age: 52 Year
  Sex: Male

DRUGS (5)
  1. RIBAVIRIN [Suspect]
     Indication: HEPATITIS CHRONIC ACTIVE
  2. PEGYLATED INTERFERON-ALFA-2A [Suspect]
     Indication: HEPATITIS CHRONIC ACTIVE
  3. GRANULOCYTE COLONY STIMULATING FACTOR [Suspect]
     Indication: LEUKOPENIA
  4. PROPRANOLOL [Concomitant]
  5. PREDNISONE TAB [Concomitant]

REACTIONS (16)
  - BUCCAL MUCOSAL ROUGHENING [None]
  - DEPRESSED MOOD [None]
  - DRUG ERUPTION [None]
  - DRUG INEFFECTIVE [None]
  - DRUG INTERACTION [None]
  - ECZEMA [None]
  - EXCORIATION [None]
  - IRRITABILITY [None]
  - LETHARGY [None]
  - LICHENOID KERATOSIS [None]
  - LIP EROSION [None]
  - PRURITUS [None]
  - PSORIASIS [None]
  - RASH [None]
  - RASH PAPULOSQUAMOUS [None]
  - SCAB [None]
